FAERS Safety Report 13371631 (Version 1)
Quarter: 2017Q1

REPORT INFORMATION
  Report Type: Report from Study
  Country: ZA (occurrence: ZA)
  Receive Date: 20170324
  Receipt Date: 20170324
  Transmission Date: 20170429
  Serious: Yes (Death, Other)
  Sender: FDA-Public Use
  Company Number: ZA-AMGEN-ZAFSL2017044649

PATIENT
  Sex: Female

DRUGS (1)
  1. ARANESP [Suspect]
     Active Substance: DARBEPOETIN ALFA
     Indication: CHRONIC KIDNEY DISEASE
     Dosage: 40 MUG, QWK
     Route: 042
     Dates: start: 201610, end: 20170321

REACTIONS (3)
  - Gastrointestinal haemorrhage [Fatal]
  - Syncope [Fatal]
  - Haematemesis [Fatal]

NARRATIVE: CASE EVENT DATE: 20170321
